FAERS Safety Report 21289529 (Version 1)
Quarter: 2022Q3

REPORT INFORMATION
  Report Type: Spontaneous
  Country: FR (occurrence: FR)
  Receive Date: 20220902
  Receipt Date: 20220902
  Transmission Date: 20221026
  Serious: Yes (Other)
  Sender: FDA-Public Use
  Company Number: None

PATIENT
  Age: 57 Year
  Sex: Female

DRUGS (2)
  1. ACTIQ [Suspect]
     Active Substance: FENTANYL CITRATE
     Indication: Product used for unknown indication
     Dosage: 15 DOSAGE FORMS DAILY; UNIT STRENGTH: 200 MICROGRAM, UNIT DOSE : 15DF, FREQUENCY TIME : 1 DAYS
     Route: 065
  2. OXYCONTIN [Suspect]
     Active Substance: OXYCODONE HYDROCHLORIDE
     Indication: Product used for unknown indication
     Dosage: STRENGTH : 30 MG
     Route: 065

REACTIONS (2)
  - Delusion [Unknown]
  - Drug dependence [Unknown]
